FAERS Safety Report 18596731 (Version 12)
Quarter: 2022Q3

REPORT INFORMATION
  Report Type: Report from Study
  Country: DE (occurrence: DE)
  Receive Date: 20201209
  Receipt Date: 20220822
  Transmission Date: 20221026
  Serious: Yes (Life-Threatening, Hospitalization, Other)
  Sender: FDA-Public Use
  Company Number: DE-TAKEDA-2020TUS054335

PATIENT
  Age: 2 Year
  Sex: Male

DRUGS (27)
  1. TEDUGLUTIDE [Suspect]
     Active Substance: TEDUGLUTIDE
     Indication: Short-bowel syndrome
     Dosage: 0.5 MILLIGRAM, QD
     Route: 042
     Dates: start: 20201015, end: 20210615
  2. TEDUGLUTIDE [Suspect]
     Active Substance: TEDUGLUTIDE
     Indication: Short-bowel syndrome
     Dosage: 0.5 MILLIGRAM, QD
     Route: 042
     Dates: start: 20201015, end: 20210615
  3. TEDUGLUTIDE [Suspect]
     Active Substance: TEDUGLUTIDE
     Indication: Short-bowel syndrome
     Dosage: 0.5 MILLIGRAM, QD
     Route: 042
     Dates: start: 20201015, end: 20210615
  4. TEDUGLUTIDE [Suspect]
     Active Substance: TEDUGLUTIDE
     Indication: Short-bowel syndrome
     Dosage: 0.5 MILLIGRAM, QD
     Route: 042
     Dates: start: 20201015, end: 20210615
  5. TEDUGLUTIDE [Suspect]
     Active Substance: TEDUGLUTIDE
     Dosage: 0.55 MILLIGRAM, QD
     Route: 042
     Dates: start: 20210706, end: 20220615
  6. TEDUGLUTIDE [Suspect]
     Active Substance: TEDUGLUTIDE
     Dosage: 0.55 MILLIGRAM, QD
     Route: 042
     Dates: start: 20210706, end: 20220615
  7. TEDUGLUTIDE [Suspect]
     Active Substance: TEDUGLUTIDE
     Dosage: 0.55 MILLIGRAM, QD
     Route: 042
     Dates: start: 20210706, end: 20220615
  8. TEDUGLUTIDE [Suspect]
     Active Substance: TEDUGLUTIDE
     Dosage: 0.55 MILLIGRAM, QD
     Route: 042
     Dates: start: 20210706, end: 20220615
  9. TEDUGLUTIDE [Suspect]
     Active Substance: TEDUGLUTIDE
     Dosage: 0.5 MILLIGRAM, QD
     Route: 042
     Dates: start: 20220714
  10. TEDUGLUTIDE [Suspect]
     Active Substance: TEDUGLUTIDE
     Dosage: 0.5 MILLIGRAM, QD
     Route: 042
     Dates: start: 20220714
  11. TEDUGLUTIDE [Suspect]
     Active Substance: TEDUGLUTIDE
     Dosage: 0.5 MILLIGRAM, QD
     Route: 042
     Dates: start: 20220714
  12. TEDUGLUTIDE [Suspect]
     Active Substance: TEDUGLUTIDE
     Dosage: 0.5 MILLIGRAM, QD
     Route: 042
     Dates: start: 20220714
  13. MEROPENEM [Concomitant]
     Active Substance: MEROPENEM
     Indication: Acinetobacter sepsis
     Dosage: 200 MILLIGRAM, QD
     Route: 042
     Dates: start: 20201014, end: 20201014
  14. MEROPENEM [Concomitant]
     Active Substance: MEROPENEM
     Dosage: 200 MILLIGRAM, QID
     Route: 042
     Dates: start: 20201013, end: 20201013
  15. MEROPENEM [Concomitant]
     Active Substance: MEROPENEM
     Dosage: 200 MILLIGRAM, TID
     Route: 042
     Dates: start: 20201002, end: 20201012
  16. MEROPENEM [Concomitant]
     Active Substance: MEROPENEM
     Dosage: 280 MILLIGRAM, TID
     Route: 042
     Dates: start: 202109, end: 20210930
  17. VANCOMYCIN [Concomitant]
     Active Substance: VANCOMYCIN
     Indication: Acinetobacter sepsis
     Dosage: 120 MILLIGRAM, QD
     Route: 042
     Dates: start: 20201013, end: 20201013
  18. VANCOMYCIN [Concomitant]
     Active Substance: VANCOMYCIN
     Dosage: 300 MILLIGRAM, TID
     Route: 042
     Dates: start: 202109, end: 20210930
  19. BACLOFEN [Concomitant]
     Active Substance: BACLOFEN
     Indication: Leukoencephalopathy
     Dosage: 1 MILLIGRAM, TID
     Route: 048
     Dates: start: 202106
  20. FLUCONAZOLE [Concomitant]
     Active Substance: FLUCONAZOLE
     Indication: Sepsis
     Dosage: 60 MILLIGRAM, QD
     Route: 042
     Dates: start: 20210616, end: 20210623
  21. PIPERACILLIN AND TAZOBACTAM [Concomitant]
     Active Substance: PIPERACILLIN SODIUM\TAZOBACTAM SODIUM
     Indication: Sepsis
     Dosage: 730 MILLIGRAM, TID
     Route: 042
     Dates: start: 20210610, end: 20210624
  22. CEFTAZIDIME [Concomitant]
     Active Substance: CEFTAZIDIME
     Indication: Sepsis
     Dosage: 20 MILLIGRAM, Q72H
     Route: 042
     Dates: start: 20210521, end: 20210604
  23. AMPICILLIN [Concomitant]
     Active Substance: AMPICILLIN
     Indication: Urinary tract infection
     Dosage: 500 MILLIGRAM, TID
     Route: 042
     Dates: start: 202204, end: 202204
  24. AMPICILLIN [Concomitant]
     Active Substance: AMPICILLIN
     Indication: Puncture site inflammation
  25. METAMIZOLE SODIUM [Concomitant]
     Active Substance: METAMIZOLE SODIUM
     Indication: Pain
     Dosage: 240 MILLIGRAM
     Route: 048
     Dates: start: 202205
  26. BETAMETHASONE [Concomitant]
     Active Substance: BETAMETHASONE
     Indication: Phimosis
     Dosage: 0.10 PERCENT, BID
     Route: 061
     Dates: start: 20220512
  27. TROSPIUM CHLORIDE [Concomitant]
     Active Substance: TROSPIUM CHLORIDE
     Indication: Anticholinergic syndrome
     Dosage: 0.75 MILLIGRAM, QD
     Route: 054
     Dates: start: 2021

REACTIONS (7)
  - Multiple organ dysfunction syndrome [Recovered/Resolved with Sequelae]
  - Device related sepsis [Recovered/Resolved]
  - Device dislocation [Recovered/Resolved]
  - Gastrointestinal haemorrhage [Recovered/Resolved]
  - Urinary bladder haemorrhage [Recovered/Resolved with Sequelae]
  - Unintentional medical device removal [Recovered/Resolved]
  - Pyrexia [Recovered/Resolved]

NARRATIVE: CASE EVENT DATE: 20201126
